FAERS Safety Report 9705106 (Version 1)
Quarter: 2013Q4

REPORT INFORMATION
  Report Type: Report from Study
  Country: US (occurrence: US)
  Receive Date: 20131122
  Receipt Date: 20131122
  Transmission Date: 20140711
  Serious: Yes (Hospitalization)
  Sender: FDA-Public Use
  Company Number: PHEH2013US024450

PATIENT
  Sex: Male

DRUGS (6)
  1. TOBI [Suspect]
     Indication: INFECTIVE PULMONARY EXACERBATION OF CYSTIC FIBROSIS
     Dosage: 300 MG, BID
  2. TOBI [Suspect]
     Indication: PSEUDOMONAS INFECTION
  3. PULMOZYME [Concomitant]
     Dosage: UNK UKN, UNK
  4. ALBUTEROL [Concomitant]
     Dosage: UNK UKN, UNK
  5. CREON [Concomitant]
     Dosage: UNK UKN, UNK
  6. HYPERTONIC SALINE SOLUTION [Concomitant]
     Dosage: UNK UKN, UNK

REACTIONS (1)
  - Oxygen saturation decreased [Unknown]
